FAERS Safety Report 18688109 (Version 4)
Quarter: 2021Q2

REPORT INFORMATION
  Report Type: Spontaneous
  Country: US (occurrence: US)
  Receive Date: 20201231
  Receipt Date: 20210629
  Transmission Date: 20210717
  Serious: No
  Sender: FDA-Public Use
  Company Number: US-PFIZER INC-2019433009

PATIENT
  Age: 69 Year
  Sex: Female
  Weight: 77.11 kg

DRUGS (7)
  1. TYLENOL [Concomitant]
     Active Substance: ACETAMINOPHEN
     Indication: PAIN
     Dosage: 1 DF, AS NEEDED(1 TABLET AS NEEDED AT BEDTIME)
  2. FLECTOR [Suspect]
     Active Substance: DICLOFENAC EPOLAMINE
     Indication: SPINAL DEFORMITY
     Dosage: 1?2 PATCHES AT NIGHT WHILE SLEEPING
     Route: 062
  3. FLECTOR [Suspect]
     Active Substance: DICLOFENAC EPOLAMINE
     Indication: NEUROPATHY PERIPHERAL
     Dosage: UNK, WEEKLY (ONCE A WEEK)
  4. ALEVE [Concomitant]
     Active Substance: NAPROXEN SODIUM
     Indication: PAIN
     Dosage: 1 DF, AS NEEDED(1 TABLET AT BEDTIME AS NEEDED)
  5. FLECTOR [Suspect]
     Active Substance: DICLOFENAC EPOLAMINE
     Indication: PAIN
     Dosage: 1.3 % (A DAY FOR 3 DAYS A WEEK. CUTS THEM IN HALF AND APPLIES TO VARIOUS PLACES ON BACK)
  6. FLECTOR [Suspect]
     Active Substance: DICLOFENAC EPOLAMINE
     Indication: SCOLIOSIS
  7. FLECTOR [Suspect]
     Active Substance: DICLOFENAC EPOLAMINE
     Indication: MUSCLE SPASMS
     Dosage: UNK, 2X/WEEK

REACTIONS (5)
  - Drug ineffective [Unknown]
  - Body height decreased [Unknown]
  - Intentional device misuse [Unknown]
  - Nerve compression [Unknown]
  - Off label use [Unknown]
